FAERS Safety Report 4601611-0 (Version None)
Quarter: 2005Q1

REPORT INFORMATION
  Report Type: 
  Country: None (occurrence: None)
  Receive Date: 20050308
  Receipt Date: 20050304
  Transmission Date: 20050727
  Serious: Yes (Hospitalization)
  Sender: FDA-Public Use
  Company Number: US-GLAXOSMITHKLINE-A0548369A

PATIENT
  Age: 74 Year
  Sex: Female

DRUGS (11)
  1. ADVAIR DISKUS 100/50 [Suspect]
     Indication: ASTHMA
     Dosage: 1PUFF TWICE PER DAY
     Route: 055
     Dates: start: 20030401
  2. AMOXICILLIN [Suspect]
     Dosage: 250MG THREE TIMES PER DAY
     Route: 048
     Dates: start: 20040601
  3. PLAVIX [Concomitant]
  4. SINGULAIR [Concomitant]
  5. ATENOLOL [Concomitant]
  6. VYTORIN [Concomitant]
  7. LEVOXYL [Concomitant]
  8. VITAMINS [Concomitant]
  9. MAXAIR [Concomitant]
  10. ALTACE [Concomitant]
  11. LOTREL [Concomitant]

REACTIONS (8)
  - CANDIDIASIS [None]
  - CORONARY ARTERY OCCLUSION [None]
  - COUGH [None]
  - DRUG INEFFECTIVE [None]
  - DRY MOUTH [None]
  - ILL-DEFINED DISORDER [None]
  - MALAISE [None]
  - MOUTH ULCERATION [None]
